FAERS Safety Report 24305764 (Version 1)
Quarter: 2024Q3

REPORT INFORMATION
  Report Type: Spontaneous
  Country: US (occurrence: None)
  Receive Date: 20240911
  Receipt Date: 20240911
  Transmission Date: 20241016
  Serious: Yes (Other)
  Sender: ASTRAZENECA
  Company Number: 2024A202538

PATIENT
  Sex: Female

DRUGS (1)
  1. TRUQAP [Suspect]
     Active Substance: CAPIVASERTIB
     Indication: Breast cancer stage IV
     Route: 048

REACTIONS (6)
  - Blood glucose increased [Unknown]
  - Eating disorder [Unknown]
  - Micturition disorder [Unknown]
  - Hydrothorax [Unknown]
  - Weight increased [Unknown]
  - Drug ineffective [Unknown]
